FAERS Safety Report 9432371 (Version 1)
Quarter: 2013Q3

REPORT INFORMATION
  Report Type: Report from Study
  Country: US (occurrence: US)
  Receive Date: 20130731
  Receipt Date: 20130731
  Transmission Date: 20140515
  Serious: Yes (Other)
  Sender: FDA-Public Use
  Company Number: US-US-EMD SERONO, INC.-7226090

PATIENT
  Sex: Male
  Weight: 95 kg

DRUGS (1)
  1. SEROSTIM [(SOMATROPIN (RDNA ORIGIN) FOR INJECTION)] [Suspect]
     Indication: HIV WASTING SYNDROME
     Route: 058

REACTIONS (14)
  - Ependymoma [Unknown]
  - Pulmonary mycosis [Unknown]
  - Cellulitis [Unknown]
  - Haemorrhoids [Unknown]
  - Myocardial infarction [Unknown]
  - Pneumocystis jirovecii pneumonia [Unknown]
  - Spinal cord haemorrhage [Unknown]
  - Deep vein thrombosis [Unknown]
  - Pneumonia bacterial [Unknown]
  - Anogenital dysplasia [Unknown]
  - Cervical spinal stenosis [Unknown]
  - Subdural haematoma [Unknown]
  - Candida infection [Unknown]
  - Oral candidiasis [Unknown]
